FAERS Safety Report 9817111 (Version 1)
Quarter: 2014Q1

REPORT INFORMATION
  Report Type: Report from Study
  Country: BR (occurrence: BR)
  Receive Date: 20140114
  Receipt Date: 20140114
  Transmission Date: 20141002
  Serious: Yes (Other)
  Sender: FDA-Public Use
  Company Number: PHHY2014BR002926

PATIENT
  Sex: Female
  Weight: 45 kg

DRUGS (5)
  1. TRILEPTAL [Suspect]
     Indication: CONVULSION
     Dosage: 300 MG, BID
     Route: 048
  2. ALOIS [Concomitant]
     Indication: DEMENTIA ALZHEIMER^S TYPE
     Dosage: UNK UKN, UNK
  3. CRESTOR [Concomitant]
     Indication: BLOOD CHOLESTEROL INCREASED
     Dosage: UNK UKN, UNK
  4. TARGIFOR [Concomitant]
     Indication: DRUG THERAPY
     Dosage: UNK UKN, UNK
  5. BUFERIN [Concomitant]
     Indication: ANTICOAGULANT THERAPY
     Dosage: UNK UKN, UNK

REACTIONS (6)
  - Femur fracture [Recovering/Resolving]
  - Pain [Recovering/Resolving]
  - Appetite disorder [Unknown]
  - Nervous system disorder [Recovering/Resolving]
  - Memory impairment [Recovering/Resolving]
  - Apathy [Recovering/Resolving]
